FAERS Safety Report 11234806 (Version 4)
Quarter: 2015Q3

REPORT INFORMATION
  Report Type: Spontaneous
  Country: CA (occurrence: CA)
  Receive Date: 20150702
  Receipt Date: 20150731
  Transmission Date: 20151125
  Serious: Yes (Other)
  Sender: FDA-Public Use
  Company Number: CA-GLAXOSMITHKLINE-A1074099A

PATIENT
  Age: 82 Year
  Sex: Female

DRUGS (8)
  1. TAFINLAR [Suspect]
     Active Substance: DABRAFENIB MESYLATE
     Indication: METASTATIC MALIGNANT MELANOMA
     Dosage: 75 MG DAILY
     Route: 065
     Dates: start: 20140520
  2. MEKINIST [Suspect]
     Active Substance: TRAMETINIB DIMETHYL SULFOXIDE
     Dosage: 2 MG, QD
  3. TAFINLAR [Suspect]
     Active Substance: DABRAFENIB MESYLATE
     Dosage: UNK
  4. PARIET [Interacting]
     Active Substance: RABEPRAZOLE SODIUM
     Indication: PRODUCT USED FOR UNKNOWN INDICATION
     Route: 065
  5. QUINIDINE [Concomitant]
     Active Substance: QUINIDINE
     Indication: BLOOD PRESSURE MEASUREMENT
  6. MEKINIST [Suspect]
     Active Substance: TRAMETINIB DIMETHYL SULFOXIDE
     Dosage: UNK, DAILY
  7. TAFINLAR [Suspect]
     Active Substance: DABRAFENIB MESYLATE
     Dosage: 300 MG, QD
  8. MEKINIST [Suspect]
     Active Substance: TRAMETINIB DIMETHYL SULFOXIDE
     Indication: METASTATIC MALIGNANT MELANOMA
     Dosage: 2 MG, 1D

REACTIONS (23)
  - Gastric ulcer [Unknown]
  - Dyspepsia [Recovered/Resolved]
  - Rash macular [Recovered/Resolved]
  - Malaise [Unknown]
  - Asthenia [Unknown]
  - Melanocytic naevus [Unknown]
  - Dyspnoea [Unknown]
  - Dyspnoea exertional [Not Recovered/Not Resolved]
  - Retching [Unknown]
  - Abdominal pain upper [Unknown]
  - Faeces discoloured [Unknown]
  - Drug interaction [Unknown]
  - Alopecia [Unknown]
  - Vomiting [Unknown]
  - Nasopharyngitis [Unknown]
  - Fatigue [Not Recovered/Not Resolved]
  - Joint swelling [Unknown]
  - Nausea [Recovered/Resolved]
  - Hyperchlorhydria [Unknown]
  - Oropharyngeal pain [Unknown]
  - Arthritis [Unknown]
  - Asthenia [Not Recovered/Not Resolved]
  - Hyperkeratosis [Unknown]

NARRATIVE: CASE EVENT DATE: 2014
